FAERS Safety Report 23493461 (Version 4)
Quarter: 2024Q2

REPORT INFORMATION
  Report Type: Report from Study
  Country: AT (occurrence: AT)
  Receive Date: 20240207
  Receipt Date: 20240403
  Transmission Date: 20240715
  Serious: Yes (Other)
  Sender: FDA-Public Use
  Company Number: AT-AMGEN-AUTSP2024022591

PATIENT
  Age: 35 Year
  Sex: Female
  Weight: 62 kg

DRUGS (73)
  1. DENOSUMAB [Suspect]
     Active Substance: DENOSUMAB
     Indication: HER2 positive breast cancer
     Dosage: UNK
     Route: 065
     Dates: start: 20170621
  2. DENOSUMAB [Suspect]
     Active Substance: DENOSUMAB
     Dosage: 3.6 MILLIGRAM, Q4WK
     Route: 065
     Dates: start: 20180129
  3. TYKERB [Suspect]
     Active Substance: LAPATINIB DITOSYLATE
     Indication: HER2 positive breast cancer
     Dosage: 250 MILLIGRAM, QD, MOST RECENT DOSE PRIOR TO AE 09/JUL/2021
     Route: 048
     Dates: start: 20201028, end: 20210709
  4. TYKERB [Suspect]
     Active Substance: LAPATINIB DITOSYLATE
     Dosage: 250 MILLIGRAM, 0.25 DAY
     Route: 048
     Dates: start: 20230630
  5. TYKERB [Suspect]
     Active Substance: LAPATINIB DITOSYLATE
     Dosage: UNK
     Route: 065
  6. HERCEPTIN [Suspect]
     Active Substance: TRASTUZUMAB
     Indication: HER2 positive breast cancer
     Dosage: 8 MILLIGRAM/KILOGRAM, Q3WK
     Route: 040
     Dates: start: 20170621, end: 20170621
  7. HERCEPTIN [Suspect]
     Active Substance: TRASTUZUMAB
     Dosage: 6 MILLIGRAM/KILOGRAM, Q3WK
     Route: 040
     Dates: start: 20170712, end: 20171115
  8. HERCEPTIN [Suspect]
     Active Substance: TRASTUZUMAB
     Dosage: 6 MILLIGRAM/KILOGRAM, Q3WK
     Route: 040
     Dates: start: 20180108, end: 20191127
  9. HERCEPTIN [Suspect]
     Active Substance: TRASTUZUMAB
     Dosage: 600 MILLIGRAM, Q3WK
     Route: 058
     Dates: start: 20201028, end: 20210709
  10. HERCEPTIN [Suspect]
     Active Substance: TRASTUZUMAB
     Dosage: 600 MILLIGRAM, Q3WK
     Route: 058
     Dates: start: 20220623
  11. HERCEPTIN [Suspect]
     Active Substance: TRASTUZUMAB
     Dosage: UNK
     Route: 065
  12. AROMASIN [Suspect]
     Active Substance: EXEMESTANE
     Indication: HER2 positive breast cancer
     Dosage: 25 MILLIGRAM, QD, MOST RECENT DOSE OF EXEMESTANE: 30/JUN/2023
     Route: 048
     Dates: start: 20200120
  13. AROMASIN [Suspect]
     Active Substance: EXEMESTANE
     Dosage: UNK
     Route: 065
  14. ARIMIDEX [Suspect]
     Active Substance: ANASTROZOLE
     Indication: Product used for unknown indication
     Dosage: 1 MG, QD
     Route: 048
     Dates: start: 20230630
  15. KADCYLA [Suspect]
     Active Substance: ADO-TRASTUZUMAB EMTANSINE
     Indication: HER2 positive breast cancer
     Dosage: 208 MG, ONCE EVERY 1 WK (ONCE EVERY 3 WK)
     Route: 065
     Dates: start: 20200120, end: 20200302
  16. KADCYLA [Suspect]
     Active Substance: ADO-TRASTUZUMAB EMTANSINE
     Dosage: 237 MG, ONCE EVERY 1 WK (ONCE EVERY 3 WK)
     Route: 065
     Dates: start: 20200323, end: 20201006
  17. KADCYLA [Suspect]
     Active Substance: ADO-TRASTUZUMAB EMTANSINE
     Dosage: 208.8 MG, ONCE EVERY 1 WK (ONCE EVERY 3 WK)
     Route: 065
     Dates: start: 20200120, end: 20200302
  18. KADCYLA [Suspect]
     Active Substance: ADO-TRASTUZUMAB EMTANSINE
     Dosage: 8 MG/KG, ONCE EVERY 3 WK (MOST RECENT DOSE PRIOR TO THE EVENT: 23/JUN/2022)
     Route: 065
     Dates: start: 20170621, end: 20170621
  19. KADCYLA [Suspect]
     Active Substance: ADO-TRASTUZUMAB EMTANSINE
     Dosage: 600 MG/KG, ONCE EVERY 3 WK (MOST RECENT DOSE PRIOR TO THE EVENT: 23/JUN/2022)
     Route: 065
     Dates: start: 20220623
  20. KADCYLA [Suspect]
     Active Substance: ADO-TRASTUZUMAB EMTANSINE
     Dosage: 8 MG/KG, ONCE EVERY 3 WK (MOST RECENT DOSE PRIOR TO THE EVENT: 23/JUN/2022)
     Route: 065
     Dates: start: 20180108, end: 20190127
  21. KADCYLA [Suspect]
     Active Substance: ADO-TRASTUZUMAB EMTANSINE
     Dosage: 8 MG/KG, ONCE EVERY 3 WK (MOST RECENT DOSE PRIOR TO THE EVENT: 23/JUN/2022)
     Route: 065
     Dates: start: 20170712, end: 20171115
  22. KADCYLA [Suspect]
     Active Substance: ADO-TRASTUZUMAB EMTANSINE
     Dosage: CUMULATIVE DOSE: 2549 MILLIGRAM
     Route: 065
  23. TAXOTERE [Suspect]
     Active Substance: DOCETAXEL
     Indication: HER2 positive breast cancer
     Dosage: 75 MILLIGRAM/SQ. METER, Q3WK, MOST RECENT DOSE PRIOR TO AE 15/NOV/2017
     Route: 040
     Dates: start: 20170621, end: 20171115
  24. TAXOTERE [Suspect]
     Active Substance: DOCETAXEL
     Dosage: 25 MG, QD, LAST ADMINISTRATION:30-JUN-2023
     Route: 042
     Dates: start: 20200120
  25. PERTUZUMAB [Suspect]
     Active Substance: PERTUZUMAB
     Indication: HER2 positive breast cancer
     Dosage: 840 MILLIGRAM, Q3WK, MOST RECENT DOSE PRIOR TO THE EVENT: 8/JAN/2018
     Route: 040
     Dates: start: 20170621, end: 20170621
  26. PERTUZUMAB [Suspect]
     Active Substance: PERTUZUMAB
     Dosage: 420 MILLIGRAM, Q3WK
     Route: 040
     Dates: start: 20170712, end: 20171115
  27. PERTUZUMAB [Suspect]
     Active Substance: PERTUZUMAB
     Dosage: 420 MILLIGRAM, Q3WK
     Route: 040
     Dates: start: 20180108, end: 20191127
  28. PERTUZUMAB [Suspect]
     Active Substance: PERTUZUMAB
     Dosage: INJECTION
     Route: 065
  29. FEMARA [Suspect]
     Active Substance: LETROZOLE
     Indication: HER2 positive breast cancer
     Dosage: 2.5 MILLIGRAM, QD, MOST RECENT DOSE PRIOR TO AE 20/JAN/2020
     Route: 048
     Dates: start: 20180108, end: 20200120
  30. FEMARA [Suspect]
     Active Substance: LETROZOLE
     Dosage: 250 MG, QD (MOST RECENT DOSE PRIOR TO AE 09/JUL/2021)
     Route: 065
     Dates: start: 20230630
  31. FEMARA [Suspect]
     Active Substance: LETROZOLE
     Dosage: 250 MG, QD (MOST RECENT DOSE PRIOR TO AE 09/JUL/2021)
     Route: 065
     Dates: start: 20201028, end: 20210709
  32. FEMARA [Suspect]
     Active Substance: LETROZOLE
     Dosage: CUMULATIVE DOSE: 1857.5 MILLIGRAM
     Route: 065
  33. TUCATINIB [Suspect]
     Active Substance: TUCATINIB
     Indication: HER2 positive breast cancer
     Dosage: 150 MILLIGRAM, BID, B.I.D. - TWICE DAILYMOST RECENT DOSE OF TUCTINIB: 12/JUN/2023
     Route: 048
     Dates: start: 20220623
  34. TUCATINIB [Suspect]
     Active Substance: TUCATINIB
     Dosage: 840 MG, ONCE EVERY 3 WK
     Route: 065
     Dates: start: 20170621
  35. TUCATINIB [Suspect]
     Active Substance: TUCATINIB
     Dosage: 420 MG, ONCE EVERY 3 WK
     Route: 065
     Dates: start: 20180108, end: 20191127
  36. TUCATINIB [Suspect]
     Active Substance: TUCATINIB
     Dosage: 420 MG, ONCE EVERY 3 WK
     Route: 065
     Dates: start: 20170712, end: 20171115
  37. CAPECITABINE [Suspect]
     Active Substance: CAPECITABINE
     Indication: HER2 positive breast cancer
     Dosage: 1000 MILLIGRAM
     Route: 048
     Dates: start: 20220626, end: 20230612
  38. ENHERTU [Suspect]
     Active Substance: FAM-TRASTUZUMAB DERUXTECAN-NXKI
     Indication: HER2 positive breast cancer
     Dosage: 360 MILLIGRAM, Q3WK
     Route: 042
     Dates: start: 20210722, end: 20230703
  39. GOSERELIN [Concomitant]
     Active Substance: GOSERELIN
     Indication: HER2 positive breast cancer
     Dosage: 3.6 MILLIGRAM, Q4WK
     Route: 058
     Dates: start: 20180108
  40. GOSERELIN [Concomitant]
     Active Substance: GOSERELIN
     Indication: Product used for unknown indication
     Dosage: UNK
     Route: 065
     Dates: start: 20180129
  41. GOSERELIN [Concomitant]
     Active Substance: GOSERELIN
     Dosage: 3.6 MG, ONCE EVERY 4 WK
     Dates: start: 20180118
  42. GOSERELIN [Concomitant]
     Active Substance: GOSERELIN
     Dosage: UNK
     Dates: start: 20230508, end: 20230515
  43. FENTANYL [Concomitant]
     Active Substance: FENTANYL\FENTANYL CITRATE
     Dosage: UNK
  44. PROPOFOL [Concomitant]
     Active Substance: PROPOFOL
     Indication: Product used for unknown indication
     Dosage: UNK
  45. PROPOFOL [Concomitant]
     Active Substance: PROPOFOL
     Dosage: UNK
     Route: 065
  46. Ketanest [Concomitant]
     Dosage: UNK
  47. ESOMEPRAZOLE [Concomitant]
     Active Substance: ESOMEPRAZOLE
     Dosage: UNK
     Dates: start: 20191230
  48. UNASYN [Concomitant]
     Active Substance: AMPICILLIN SODIUM\SULBACTAM SODIUM
     Indication: Pneumonia
     Dosage: UNK
     Dates: start: 20230507, end: 20230508
  49. AMOXICILLIN\CLAVULANATE POTASSIUM [Concomitant]
     Active Substance: AMOXICILLIN\CLAVULANATE POTASSIUM
     Indication: Pneumonia
     Dosage: UNK
     Dates: start: 20230508, end: 20230515
  50. DEXAMETHASONE [Concomitant]
     Active Substance: DEXAMETHASONE
     Indication: Syncope
     Dosage: UNK
     Dates: start: 20201111
  51. DEXAMETHASONE [Concomitant]
     Active Substance: DEXAMETHASONE
     Dosage: UNK
     Dates: start: 20230509
  52. LOPERAMIDE HYDROCHLORIDE [Concomitant]
     Active Substance: LOPERAMIDE HYDROCHLORIDE
     Indication: Product used for unknown indication
     Dosage: UNK
     Dates: start: 20201028
  53. LOPERAMIDE HYDROCHLORIDE [Concomitant]
     Active Substance: LOPERAMIDE HYDROCHLORIDE
     Dosage: UNK
     Dates: start: 20230508, end: 20230515
  54. CLOBAZAM [Concomitant]
     Active Substance: CLOBAZAM
     Indication: Epilepsy
     Dosage: UNK
     Dates: start: 20230508
  55. LEVETIRACETAM [Concomitant]
     Active Substance: LEVETIRACETAM
     Indication: Product used for unknown indication
     Dosage: UNK
     Dates: start: 20200102
  56. LEVETIRACETAM [Concomitant]
     Active Substance: LEVETIRACETAM
     Dosage: UNK
     Dates: start: 20230508, end: 20230515
  57. ZOFRAN [Concomitant]
     Active Substance: ONDANSETRON HYDROCHLORIDE
     Dosage: UNK
  58. ESOMEPRAZOLE [Concomitant]
     Active Substance: ESOMEPRAZOLE
     Indication: Product used for unknown indication
     Dosage: UNK
     Dates: start: 20170621
  59. ESOMEPRAZOLE [Concomitant]
     Active Substance: ESOMEPRAZOLE
     Dosage: UNK
     Dates: start: 20230508, end: 20230515
  60. ESOMEPRAZOLE [Concomitant]
     Active Substance: ESOMEPRAZOLE
     Dosage: UNK
     Dates: start: 20230508, end: 20230515
  61. DIPHENHYDRAMINE HYDROCHLORIDE [Concomitant]
     Active Substance: DIPHENHYDRAMINE HYDROCHLORIDE
     Indication: Product used for unknown indication
     Dosage: UNK
  62. DIPHENHYDRAMINE HYDROCHLORIDE [Concomitant]
     Active Substance: DIPHENHYDRAMINE HYDROCHLORIDE
     Dosage: UNK
     Dates: start: 20230508, end: 20230515
  63. CALCIUM CARBONATE\CHOLECALCIFEROL [Concomitant]
     Active Substance: CALCIUM CARBONATE\CHOLECALCIFEROL
     Dosage: UNK
     Dates: start: 20171025
  64. DEXABENE [Concomitant]
     Indication: Product used for unknown indication
     Dosage: UNK
  65. DEXABENE [Concomitant]
     Dosage: UNK
     Dates: start: 20230508, end: 20230515
  66. APREPITANT [Concomitant]
     Active Substance: APREPITANT
     Indication: Product used for unknown indication
     Dosage: UNK
     Route: 065
     Dates: start: 20210812
  67. KETOPROFEN [Concomitant]
     Active Substance: KETOPROFEN
     Indication: Product used for unknown indication
     Dosage: UNK
  68. KETOPROFEN [Concomitant]
     Active Substance: KETOPROFEN
     Dosage: UNK
     Dates: start: 20230508, end: 20230515
  69. Novalgin [Concomitant]
     Dosage: UNK
     Dates: start: 20180515
  70. LIPEGFILGRASTIM [Concomitant]
     Active Substance: LIPEGFILGRASTIM
     Indication: Product used for unknown indication
     Dosage: UNK
  71. LIPEGFILGRASTIM [Concomitant]
     Active Substance: LIPEGFILGRASTIM
     Dosage: UNK
     Dates: start: 20230508, end: 20230515
  72. AMOXICILLIN TRIHYDRATE [Concomitant]
     Active Substance: AMOXICILLIN
     Indication: Pneumonia
     Dosage: UNK
     Route: 065
  73. KETAMINE HYDROCHLORIDE [Concomitant]
     Active Substance: KETAMINE HYDROCHLORIDE
     Indication: Product used for unknown indication
     Dosage: UNK
     Dates: start: 20230508, end: 20230515

REACTIONS (1)
  - Cataract [Recovered/Resolved]

NARRATIVE: CASE EVENT DATE: 20230511
